FAERS Safety Report 21559174 (Version 2)
Quarter: 2022Q4

REPORT INFORMATION
  Report Type: Spontaneous
  Country: GB (occurrence: GB)
  Receive Date: 20221107
  Receipt Date: 20221109
  Transmission Date: 20230113
  Serious: Yes (Death, Life-Threatening, Other)
  Sender: FDA-Public Use
  Company Number: GB-PFIZER INC-PV202200096546

PATIENT
  Age: 68 Year
  Sex: Male

DRUGS (1)
  1. VORICONAZOLE [Suspect]
     Active Substance: VORICONAZOLE
     Indication: Aspergillus infection
     Dosage: UNK
     Dates: start: 2003, end: 2014

REACTIONS (3)
  - Papilloma viral infection [Fatal]
  - Squamous cell carcinoma [Fatal]
  - Photosensitivity reaction [Unknown]

NARRATIVE: CASE EVENT DATE: 20210501
